FAERS Safety Report 5092255-8 (Version None)
Quarter: 2006Q3

REPORT INFORMATION
  Report Type: 
  Country: None (occurrence: None)
  Receive Date: 20060828
  Receipt Date: 20060828
  Transmission Date: 20061208
  Serious: Yes (Other)
  Sender: FDA-Public Use
  Company Number: None

PATIENT
  Age: 16 Year
  Sex: Female
  Weight: 50.8029 kg

DRUGS (1)
  1. LUPRON DEPOT [Suspect]
     Indication: VON WILLEBRAND'S DISEASE
     Dosage: 11.75 MG  1 INJUCTION Q3 MON  IM
     Route: 030
     Dates: start: 20031101, end: 20041101

REACTIONS (5)
  - AMNESIA [None]
  - FATIGUE [None]
  - HYPOAESTHESIA [None]
  - THYROID DISORDER [None]
  - WEIGHT DECREASED [None]
